FAERS Safety Report 15937590 (Version 2)
Quarter: 2019Q1

REPORT INFORMATION
  Report Type: Spontaneous
  Country: RU (occurrence: RU)
  Receive Date: 20190208
  Receipt Date: 20190218
  Transmission Date: 20190417
  Serious: Yes (Other)
  Sender: FDA-Public Use
  Company Number: RU-ABBVIE-19P-251-2656925-00

PATIENT
  Weight: 40 kg

DRUGS (1)
  1. KLACID [Suspect]
     Active Substance: CLARITHROMYCIN
     Indication: PRODUCT USED FOR UNKNOWN INDICATION
     Dosage: DOSAGE BEFORE SEZURE EPILEPTICUS  250 MG.
     Route: 048

REACTIONS (1)
  - Epilepsy [Unknown]
